FAERS Safety Report 6245204-0 (Version None)
Quarter: 2009Q2

REPORT INFORMATION
  Report Type: 
  Country: None (occurrence: None)
  Receive Date: 20090625
  Receipt Date: 20090619
  Transmission Date: 20091009
  Serious: Yes (Death, Hospitalization, Disabling, Other)
  Sender: FDA-Public Use
  Company Number: PHHO2009DE07736

PATIENT
  Sex: Male

DRUGS (41)
  1. CYCLOSPORINE [Suspect]
     Indication: RENAL TRANSPLANT
     Dosage: 150 MG, QD
     Route: 048
     Dates: start: 20030730, end: 20030912
  2. CYCLOSPORINE [Suspect]
     Dosage: 40 MG, BID
     Route: 048
     Dates: start: 20030913, end: 20030925
  3. CYCLOSPORINE [Suspect]
     Dosage: 125 MG, ONCE/SINGLE
     Route: 048
     Dates: start: 20030926, end: 20030926
  4. DACLIZUMAB [Suspect]
     Indication: RENAL TRANSPLANT
     Dosage: 150 MG, ONCE/SINGLE
     Route: 042
     Dates: start: 20030730, end: 20030812
  5. DACLIZUMAB [Suspect]
     Dosage: 75 MG ONCE EVERY 2 WEEKS
     Route: 042
     Dates: start: 20030813, end: 20030910
  6. MYCOPHENOLATE MOFETIL [Suspect]
     Indication: RENAL TRANSPLANT
     Dosage: 1 G, ONCE/SINGLE
     Dates: start: 20030730, end: 20030730
  7. MYCOPHENOLATE MOFETIL [Suspect]
     Dosage: 2 G, QD
     Route: 048
     Dates: start: 20030731, end: 20030801
  8. MYCOPHENOLATE MOFETIL [Suspect]
     Dosage: 1 G DAILY
     Route: 048
     Dates: start: 20030909, end: 20030911
  9. MYCOPHENOLATE MOFETIL [Suspect]
     Dosage: 500 MG ONCE
     Dates: start: 20030912, end: 20030913
  10. MYCOPHENOLATE MOFETIL [Suspect]
     Dosage: 1000 MG DAILY
     Route: 048
     Dates: start: 20030913, end: 20030915
  11. MYCOPHENOLATE MOFETIL [Suspect]
     Dosage: 500 MG ONCE
     Route: 048
     Dates: start: 20030916, end: 20030916
  12. MYCOPHENOLATE MOFETIL [Suspect]
     Dosage: 250 MG DAILY
     Route: 048
     Dates: start: 20030917
  13. PREDNISOLONE [Suspect]
     Indication: RENAL TRANSPLANT
     Dosage: 750 MG, QD
     Route: 042
     Dates: start: 20030730, end: 20030730
  14. PREDNISOLONE [Suspect]
     Dosage: 250 MG, QD
     Route: 042
     Dates: start: 20030807, end: 20030809
  15. PREDNISOLONE [Suspect]
     Dosage: 100 MG, QD
     Route: 042
     Dates: start: 20030810, end: 20030812
  16. DECORTIN [Suspect]
     Indication: RENAL TRANSPLANT
     Dosage: 75MG 1X PER DAY
     Route: 048
     Dates: start: 20030731, end: 20030731
  17. DECORTIN [Suspect]
     Dosage: 50 MG, BID
     Route: 048
     Dates: start: 20030801, end: 20030802
  18. DECORTIN [Suspect]
     Dosage: 75 MG, QD
     Dates: start: 20030803, end: 20030803
  19. DECORTIN [Suspect]
     Dosage: 50 MG, QD
     Route: 048
     Dates: start: 20030804, end: 20030805
  20. DECORTIN [Suspect]
     Dosage: 35 MG, QD
     Route: 048
     Dates: start: 20030806, end: 20030807
  21. DECORTIN [Suspect]
     Dosage: 75 MG DAILY
     Route: 048
     Dates: start: 20030813, end: 20030817
  22. DECORTIN [Suspect]
     Dosage: 50 MG DAILY
     Route: 048
     Dates: start: 20030818, end: 20030820
  23. DECORTIN [Suspect]
     Dosage: 35 MG DAILY
     Route: 048
     Dates: start: 20030821, end: 20030827
  24. DECORTIN [Suspect]
     Dosage: 30 MG DAILY
     Route: 048
     Dates: start: 20030828, end: 20030902
  25. DECORTIN [Suspect]
     Dosage: 25 MG DAILY
     Route: 048
     Dates: start: 20030903, end: 20030917
  26. DECORTIN [Suspect]
     Dosage: 20 MG DAILY
     Dates: start: 20030919
  27. PANTOZOL [Concomitant]
  28. PRAVASTATIN SODIUM [Concomitant]
  29. ACTONEL [Concomitant]
  30. DILATREND [Concomitant]
  31. NEORECORMON [Concomitant]
  32. INSULIN [Concomitant]
  33. AMPHOTERICIN B [Concomitant]
  34. NORVASC [Concomitant]
  35. LACTULOSE [Concomitant]
  36. ROCALTROL [Concomitant]
  37. ACETYLCYSTEINE [Concomitant]
  38. ACTRAPID HUMAN [Concomitant]
  39. MOXIFLOXACIN HCL [Concomitant]
  40. TROSPIUM CHLORIDE [Concomitant]
  41. AMPICILLIN AND SULBACTAM [Concomitant]

REACTIONS (20)
  - ABSCESS DRAINAGE [None]
  - APHASIA [None]
  - AREFLEXIA [None]
  - ASPERGILLOSIS [None]
  - BRAIN ABSCESS [None]
  - CEREBROVASCULAR ACCIDENT [None]
  - COMA [None]
  - COUGH [None]
  - DYSARTHRIA [None]
  - DYSPHASIA [None]
  - FACIAL PALSY [None]
  - GLOMERULOSCLEROSIS [None]
  - HAEMORRHAGE INTRACRANIAL [None]
  - HEMIPARESIS [None]
  - LUNG INFECTION PSEUDOMONAL [None]
  - PRODUCTIVE COUGH [None]
  - PULMONARY CONGESTION [None]
  - PYREXIA [None]
  - SEPSIS [None]
  - SOMNOLENCE [None]
